FAERS Safety Report 20737285 (Version 1)
Quarter: 2022Q2

REPORT INFORMATION
  Report Type: Spontaneous
  Country: US (occurrence: None)
  Receive Date: 20220421
  Receipt Date: 20220421
  Transmission Date: 20220721
  Serious: No
  Sender: FDA-Public Use
  Company Number: 2022A139382

PATIENT
  Age: 21761 Day

DRUGS (1)
  1. ROSUVASTATIN [Suspect]
     Active Substance: ROSUVASTATIN
     Indication: Blood cholesterol
     Route: 048
     Dates: start: 20220404

REACTIONS (1)
  - Feeling abnormal [Unknown]

NARRATIVE: CASE EVENT DATE: 20220405
